FAERS Safety Report 25611129 (Version 1)
Quarter: 2025Q3

REPORT INFORMATION
  Report Type: Spontaneous
  Country: US (occurrence: US)
  Receive Date: 20250728
  Receipt Date: 20250728
  Transmission Date: 20251020
  Serious: No
  Sender: PFIZER
  Company Number: US-PFIZER INC-202500151348

PATIENT
  Age: 40 Year
  Sex: Female

DRUGS (6)
  1. SOMAVERT [Suspect]
     Active Substance: PEGVISOMANT
     Dosage: INJECT 30MG UNDER THE SKIN DAILY
     Route: 058
     Dates: start: 20240529
  2. SOMAVERT [Suspect]
     Active Substance: PEGVISOMANT
     Dosage: INJECT 30MG UNDER THE SKIN DAILY
     Route: 058
     Dates: start: 20240529
  3. PASIREOTIDE PAMOATE [Suspect]
     Active Substance: PASIREOTIDE PAMOATE
  4. FUROSEMIDE [Concomitant]
     Active Substance: FUROSEMIDE
  5. LEVOTHYROXINE [Concomitant]
     Active Substance: LEVOTHYROXINE
  6. PANTOPRAZOLE [Concomitant]
     Active Substance: PANTOPRAZOLE

REACTIONS (2)
  - Insulin-like growth factor increased [Not Recovered/Not Resolved]
  - Off label use [Unknown]

NARRATIVE: CASE EVENT DATE: 20250101
